FAERS Safety Report 17689573 (Version 1)
Quarter: 2020Q2

REPORT INFORMATION
  Report Type: Spontaneous
  Country: US (occurrence: US)
  Receive Date: 20200421
  Receipt Date: 20200421
  Transmission Date: 20200714
  Serious: Yes (Hospitalization)
  Sender: FDA-Public Use
  Company Number: None

PATIENT
  Age: 10 Year
  Sex: Male

DRUGS (1)
  1. NORDITROPIN [Suspect]
     Active Substance: SOMATROPIN
     Indication: LOW BIRTH WEIGHT BABY
     Dosage: ?          OTHER FREQUENCY:SIX TIMES PER WEEK;?
     Route: 058
     Dates: start: 20200221

REACTIONS (3)
  - Viral infection [None]
  - Therapy interrupted [None]
  - Pyrexia [None]

NARRATIVE: CASE EVENT DATE: 20200323
